FAERS Safety Report 6887320-6 (Version None)
Quarter: 2010Q3

REPORT INFORMATION
  Report Type: 
  Country: None (occurrence: None)
  Receive Date: 20100730
  Receipt Date: 20090730
  Transmission Date: 20110219
  Serious: No
  Sender: FDA-Public Use
  Company Number: A0799673A

PATIENT
  Age: 60 Year
  Sex: Female

DRUGS (4)
  1. IMITREX [Suspect]
     Indication: MIGRAINE
     Dosage: 25MG AS REQUIRED
     Route: 048
  2. TAMOXIFEN CITRATE [Concomitant]
  3. ATIVAN [Concomitant]
  4. UNKNOWN MEDICATION [Concomitant]
     Indication: NAUSEA

REACTIONS (1)
  - DRUG INEFFECTIVE [None]
